FAERS Safety Report 5753423-2 (Version None)
Quarter: 2008Q2

REPORT INFORMATION
  Report Type: 
  Country: None (occurrence: None)
  Receive Date: 20080530
  Receipt Date: 20080529
  Transmission Date: 20081010
  Serious: Yes (Life-Threatening, Hospitalization)
  Sender: FDA-Public Use
  Company Number: US-ASTRAZENECA-2008UW10850

PATIENT
  Age: 24980 Day
  Sex: Male
  Weight: 65.8 kg

DRUGS (3)
  1. NEXIUM [Suspect]
     Indication: GASTROOESOPHAGEAL REFLUX DISEASE
     Route: 048
  2. XANAX [Concomitant]
  3. CLARITIN [Concomitant]

REACTIONS (2)
  - GASTRIC ULCER [None]
  - OESOPHAGEAL RUPTURE [None]
